FAERS Safety Report 5568247-9 (Version None)
Quarter: 2007Q4

REPORT INFORMATION
  Report Type: 
  Country: None (occurrence: None)
  Receive Date: 20071218
  Receipt Date: 20071211
  Transmission Date: 20080405
  Serious: Yes (Life-Threatening)
  Sender: FDA-Public Use
  Company Number: TPA2007A02261

PATIENT
  Age: 58 Year
  Sex: Female
  Weight: 101.1521 kg

DRUGS (7)
  1. ACTOPLUS MET [Suspect]
     Indication: TYPE 2 DIABETES MELLITUS
     Dosage: 15/500 MG, 1 IN 1 D, PER ORAL; 15/500 MG, 2 IN 1 D, PER ORAL
     Route: 048
     Dates: start: 20070623, end: 20071002
  2. ACTOPLUS MET [Suspect]
     Indication: TYPE 2 DIABETES MELLITUS
     Dosage: 15/500 MG, 1 IN 1 D, PER ORAL; 15/500 MG, 2 IN 1 D, PER ORAL
     Route: 048
     Dates: start: 20071002, end: 20071030
  3. CARDURA XL [Concomitant]
  4. NORVASC [Concomitant]
  5. LASIX [Concomitant]
  6. SINGULAIR [Concomitant]
  7. AVANDIA [Concomitant]

REACTIONS (2)
  - ANAPHYLACTIC REACTION [None]
  - DYSPHAGIA [None]
